FAERS Safety Report 6965389-8 (Version None)
Quarter: 2010Q3

REPORT INFORMATION
  Report Type: 
  Country: None (occurrence: None)
  Receive Date: 20100903
  Receipt Date: 20100831
  Transmission Date: 20110219
  Serious: Yes (Hospitalization)
  Sender: FDA-Public Use
  Company Number: A0877089A

PATIENT
  Age: 15 Year
  Sex: Male

DRUGS (2)
  1. AMOXICILLIN AND CLAVULANATE POTASSIUM [Suspect]
     Indication: TONSILLITIS
     Dosage: 875MG TWICE PER DAY
     Dates: start: 20100802, end: 20100804
  2. NONE [Concomitant]

REACTIONS (6)
  - CHOLURIA [None]
  - HEPATIC ENZYME INCREASED [None]
  - HEPATIC FAILURE [None]
  - HEPATITIS [None]
  - HEPATITIS VIRAL [None]
  - OCULAR ICTERUS [None]
